FAERS Safety Report 20323888 (Version 2)
Quarter: 2022Q1

REPORT INFORMATION
  Report Type: Report from Study
  Country: US (occurrence: US)
  Receive Date: 20220111
  Receipt Date: 20220119
  Transmission Date: 20220423
  Serious: Yes (Other)
  Sender: FDA-Public Use
  Company Number: US-PFIZER INC-202101883387

PATIENT
  Age: 61 Year
  Sex: Female
  Weight: 75.66 kg

DRUGS (3)
  1. TALAZOPARIB [Suspect]
     Active Substance: TALAZOPARIB
     Dosage: 350 UG, DAYS 1-3
     Route: 048
     Dates: start: 20180522
  2. CARBOPLATIN [Suspect]
     Active Substance: CARBOPLATIN
     Dosage: AUC 6 IV OVER 30 MIN ON DAY 1
     Route: 042
     Dates: start: 20180522
  3. TAXOL [Suspect]
     Active Substance: PACLITAXEL

REACTIONS (3)
  - White blood cell count decreased [Not Recovered/Not Resolved]
  - Anaemia [Not Recovered/Not Resolved]
  - Neutrophil count decreased [Not Recovered/Not Resolved]

NARRATIVE: CASE EVENT DATE: 20180814
